FAERS Safety Report 5221252-4 (Version None)
Quarter: 2007Q1

REPORT INFORMATION
  Report Type: 
  Country: None (occurrence: None)
  Receive Date: 20070126
  Receipt Date: 20070115
  Transmission Date: 20070707
  Serious: No
  Sender: FDA-Public Use
  Company Number: JP-PFIZER INC-2006089882

PATIENT
  Sex: Female
  Weight: 52 kg

DRUGS (9)
  1. SILDENAFIL (PAH) [Suspect]
     Indication: PULMONARY HYPERTENSION
     Route: 048
  2. OXYGEN [Concomitant]
     Route: 065
  3. BERAPROST [Concomitant]
     Route: 065
  4. ALDACTAZIDE-A [Concomitant]
     Route: 048
  5. DIART [Concomitant]
     Route: 048
  6. TAGAMET [Concomitant]
     Route: 065
  7. ALEVIATIN [Concomitant]
     Route: 048
  8. DEPAKENE [Concomitant]
     Route: 048
  9. SELBEX [Concomitant]
     Route: 048

REACTIONS (1)
  - NO ADVERSE EFFECT [None]
